FAERS Safety Report 7363992-7 (Version None)
Quarter: 2011Q1

REPORT INFORMATION
  Report Type: 
  Country: None (occurrence: None)
  Receive Date: 20110321
  Receipt Date: 20110226
  Transmission Date: 20110831
  Serious: No
  Sender: FDA-Public Use
  Company Number: JP-ROCHE-766311

PATIENT
  Age: 4 Year
  Sex: Female

DRUGS (1)
  1. TAMIFLU [Suspect]
     Dosage: DOSAGE WAS UNCERTAIN
     Route: 048
     Dates: start: 20110226, end: 20110226

REACTIONS (1)
  - WRONG DRUG ADMINISTERED [None]
